FAERS Safety Report 11386036 (Version 1)
Quarter: 2015Q3

REPORT INFORMATION
  Report Type: Spontaneous
  Country: US (occurrence: US)
  Receive Date: 20150817
  Receipt Date: 20150817
  Transmission Date: 20151125
  Serious: No
  Sender: FDA-Public Use
  Company Number: US-ASTRAZENECA-2015SE76221

PATIENT
  Age: 3301 Week
  Sex: Female
  Weight: 50.3 kg

DRUGS (19)
  1. ENTOCORT EC [Suspect]
     Active Substance: BUDESONIDE
     Indication: CROHN^S DISEASE
     Route: 048
  2. ENTOCORT EC [Suspect]
     Active Substance: BUDESONIDE
     Indication: CROHN^S DISEASE
     Route: 048
  3. ENTOCORT EC [Suspect]
     Active Substance: BUDESONIDE
     Indication: CROHN^S DISEASE
     Dosage: ALTERNATING 2 CAPSULES 1 DAY AND 1 CAPSULE THE NEXT
     Route: 048
     Dates: start: 20150803
  4. NORCO [Concomitant]
     Active Substance: ACETAMINOPHEN\HYDROCODONE BITARTRATE
     Indication: PAIN
     Dosage: 5/325 MG Q 6 PRN
  5. TYLENOL [Concomitant]
     Active Substance: ACETAMINOPHEN
     Indication: HEADACHE
  6. ENTOCORT EC [Suspect]
     Active Substance: BUDESONIDE
     Indication: CROHN^S DISEASE
     Dosage: NON AZ DRUG - MANUFACTURED BY MYLAN
     Route: 048
  7. NORFLEX [Concomitant]
     Active Substance: ORPHENADRINE CITRATE
     Indication: ARTHRITIS ENTEROPATHIC
     Dosage: TWO TIMES A DAY
  8. ALDACTONE [Concomitant]
     Active Substance: SPIRONOLACTONE
  9. ZYRTEC OTC [Concomitant]
     Indication: RHINITIS ALLERGIC
     Dosage: AT NIGHT
  10. AQUADEX [Concomitant]
  11. VITAMIN B12 [Concomitant]
     Active Substance: CYANOCOBALAMIN
  12. ALLERGY SHOTS [Concomitant]
     Active Substance: UNSPECIFIED INGREDIENT
     Indication: HYPERSENSITIVITY
     Dosage: MONTHLY
  13. ALBUTEROL. [Concomitant]
     Active Substance: ALBUTEROL
     Indication: BRONCHOSPASM
     Dosage: AS REQUIRED
  14. NORFLEX [Concomitant]
     Active Substance: ORPHENADRINE CITRATE
     Indication: MUSCLE SPASMS
     Dosage: TWO TIMES A DAY
  15. CLONIDINE. [Concomitant]
     Active Substance: CLONIDINE
     Indication: ARTHRITIS
  16. MAG SULFATE IV [Concomitant]
  17. IMFED (INFEROM)  IV [Concomitant]
     Indication: IRON DEFICIENCY ANAEMIA
  18. FOLIC ACID. [Concomitant]
     Active Substance: FOLIC ACID
  19. MICRO K [Concomitant]

REACTIONS (7)
  - Headache [Not Recovered/Not Resolved]
  - Tachycardia [Not Recovered/Not Resolved]
  - Off label use [Not Recovered/Not Resolved]
  - Hypertension [Not Recovered/Not Resolved]
  - Blood magnesium increased [Not Recovered/Not Resolved]
  - Diarrhoea [Not Recovered/Not Resolved]
  - Blood potassium increased [Not Recovered/Not Resolved]

NARRATIVE: CASE EVENT DATE: 20150803
